FAERS Safety Report 14288172 (Version 1)
Quarter: 2017Q4

REPORT INFORMATION
  Report Type: Report from Study
  Country: DE (occurrence: DE)
  Receive Date: 20171214
  Receipt Date: 20171214
  Transmission Date: 20180321
  Serious: Yes (Hospitalization)
  Sender: FDA-Public Use
  Company Number: DE-TEVA-2017-DE-830627

PATIENT
  Age: 65 Year
  Sex: Female
  Weight: 51 kg

DRUGS (11)
  1. PACLITAXEL. [Suspect]
     Active Substance: PACLITAXEL
     Dates: start: 20121002
  2. BISOPROLOL [Concomitant]
     Active Substance: BISOPROLOL
     Indication: HYPERTENSION
     Dosage: LAST DOSE PRIOR TO EVENT 02/NOV/2012
     Route: 048
     Dates: start: 20121012
  3. AVASTIN [Suspect]
     Active Substance: BEVACIZUMAB
     Indication: OVARIAN CANCER
     Route: 042
     Dates: start: 20121002
  4. AVASTIN [Suspect]
     Active Substance: BEVACIZUMAB
     Dates: start: 20121023
  5. CARBOPLATIN. [Suspect]
     Active Substance: CARBOPLATIN
     Indication: OVARIAN CANCER
     Route: 042
     Dates: start: 20121023
  6. CARBOPLATIN. [Suspect]
     Active Substance: CARBOPLATIN
     Dates: start: 20121113
  7. PACLITAXEL. [Suspect]
     Active Substance: PACLITAXEL
     Indication: OVARIAN CANCER
     Route: 042
     Dates: start: 20120910
  8. CARBOPLATIN. [Suspect]
     Active Substance: CARBOPLATIN
     Dates: start: 20120910
  9. AVASTIN [Suspect]
     Active Substance: BEVACIZUMAB
     Dosage: MOST RECENT DOSE PRIOR TO DEEP VEIN THROMBOSIS
     Dates: start: 20121113, end: 20121113
  10. PACLITAXEL. [Suspect]
     Active Substance: PACLITAXEL
     Dates: start: 20121023
  11. PACLITAXEL. [Suspect]
     Active Substance: PACLITAXEL
     Dates: start: 20121113

REACTIONS (5)
  - Deep vein thrombosis [Not Recovered/Not Resolved]
  - Urinary tract infection [Recovered/Resolved]
  - Tachycardia [Recovered/Resolved]
  - Pyrexia [Recovered/Resolved]
  - Leukopenia [Recovered/Resolved]

NARRATIVE: CASE EVENT DATE: 20121101
